FAERS Safety Report 6912964-2 (Version None)
Quarter: 2010Q3

REPORT INFORMATION
  Report Type: 
  Country: None (occurrence: None)
  Receive Date: 20100806
  Receipt Date: 20090427
  Transmission Date: 20110219
  Serious: No
  Sender: FDA-Public Use
  Company Number: US-PFIZER INC-2009166474

PATIENT
  Age: 87 Year
  Sex: Female

DRUGS (2)
  1. DETROL LA [Suspect]
     Indication: HYPERTONIC BLADDER
     Dosage: 4 MG
     Route: 048
     Dates: start: 20080601, end: 20090101
  2. DETROL LA [Suspect]
     Indication: NOCTURIA

REACTIONS (2)
  - DRUG INEFFECTIVE [None]
  - DRY MOUTH [None]
